FAERS Safety Report 5144272-7 (Version None)
Quarter: 2006Q4

REPORT INFORMATION
  Report Type: 
  Country: None (occurrence: None)
  Receive Date: 20061102
  Receipt Date: 20061102
  Transmission Date: 20070319
  Serious: Yes (Disabling)
  Sender: FDA-Public Use
  Company Number: None

PATIENT
  Age: 27 Year
  Sex: Male
  Weight: 127 kg

DRUGS (1)
  1. PHENYTOIN 125 MG / 5 ML TARO [Suspect]
     Indication: CONVULSION
     Dosage: 100 MG EVERY 8 HOURS PO
     Route: 048
     Dates: start: 20061003, end: 20061010

REACTIONS (1)
  - PYREXIA [None]
